FAERS Safety Report 7346907 (Version 2)
Quarter: 2014Q1

REPORT INFORMATION
  Report Type: Spontaneous
  Country: US (occurrence: US)
  Receive Date: 20100407
  Receipt Date: 20140129
  Transmission Date: 20141002
  Serious: Yes (Hospitalization)
  Sender: FDA-Public Use
  Company Number: US-JNJFOC-20100308898

PATIENT
  Age: 53 Year
  Sex: Male
  Weight: 77.11 kg

DRUGS (5)
  1. UNSPECIFIED FENTANYL TRANSDERMAL SYSTEM [Suspect]
     Indication: TRIGEMINAL NEURALGIA
     Route: 062
     Dates: start: 200906
  2. UNSPECIFIED FENTANYL TRANSDERMAL SYSTEM [Suspect]
     Indication: TRIGEMINAL NEURALGIA
     Route: 062
     Dates: start: 2009, end: 201002
  3. SANDOZ FENTANYL TRANSDERMAL SYSTEM [Suspect]
     Indication: TRIGEMINAL NEURALGIA
     Route: 062
     Dates: start: 201002
  4. SANDOZ FENTANYL TRANSDERMAL SYSTEM [Suspect]
     Indication: TRIGEMINAL NEURALGIA
     Route: 062
     Dates: start: 201002
  5. PRILOSEC [Concomitant]
     Indication: GASTRIC DISORDER
     Route: 048

REACTIONS (6)
  - Gastrointestinal pain [Recovered/Resolved]
  - Wrong technique in drug usage process [Unknown]
  - Dry skin [Not Recovered/Not Resolved]
  - Drug effect incomplete [Not Recovered/Not Resolved]
  - Product quality issue [Unknown]
  - Product quality issue [Unknown]
